FAERS Safety Report 4449799-9 (Version None)
Quarter: 2004Q3

REPORT INFORMATION
  Report Type: 
  Country: None (occurrence: None)
  Receive Date: 20040802
  Receipt Date: 20030820
  Transmission Date: 20050211
  Serious: Yes (Hospitalization)
  Sender: FDA-Public Use
  Company Number: US-SHR-03-013296

PATIENT
  Age: 57 Year
  Sex: Female
  Weight: 72.6 kg

DRUGS (1)
  1. MAGNEVIST [Suspect]
     Indication: NUCLEAR MAGNETIC RESONANCE IMAGING BRAIN
     Dosage: 20 ML, 1 DOSE, INTRAVENOUS
     Route: 042
     Dates: start: 20030819, end: 20030819

REACTIONS (3)
  - DYSPNOEA [None]
  - INJECTION SITE REACTION [None]
  - THROAT TIGHTNESS [None]
